FAERS Safety Report 23178963 (Version 1)
Quarter: 2023Q4

REPORT INFORMATION
  Report Type: Spontaneous
  Country: DE (occurrence: DE)
  Receive Date: 20231113
  Receipt Date: 20231113
  Transmission Date: 20240110
  Serious: Yes (Other)
  Sender: FDA-Public Use
  Company Number: DE-PFIZER INC-202300360135

PATIENT
  Age: 78 Year
  Sex: Male

DRUGS (1)
  1. TAFAMIDIS [Suspect]
     Active Substance: TAFAMIDIS
     Dosage: 61 MG
     Dates: start: 202201

REACTIONS (3)
  - Cardiac failure [Unknown]
  - Atrial fibrillation [Unknown]
  - Cardiac ablation [Unknown]

NARRATIVE: CASE EVENT DATE: 20220501
